FAERS Safety Report 8883898 (Version 1)
Quarter: 2012Q4

REPORT INFORMATION
  Report Type: 
  Country: US (occurrence: US)
  Receive Date: 20121102
  Receipt Date: 20121102
  Transmission Date: 20130627
  Serious: No
  Sender: FDA-Public Use
  Company Number: US-ASTRAZENECA-2012SE10392

PATIENT
  Age: 63 Year
  Sex: Male
  Weight: 76.2 kg

DRUGS (13)
  1. CRESTOR [Suspect]
     Indication: BLOOD CHOLESTEROL
     Route: 048
  2. CRESTOR [Suspect]
     Indication: HYPERLIPIDAEMIA
     Route: 048
  3. CRESTOR [Suspect]
     Indication: BLOOD CHOLESTEROL
     Route: 048
  4. CRESTOR [Suspect]
     Indication: HYPERLIPIDAEMIA
     Route: 048
  5. CRESTOR [Suspect]
     Indication: BLOOD CHOLESTEROL
     Dosage: 5-15 MG
     Route: 048
     Dates: start: 20111103
  6. CRESTOR [Suspect]
     Indication: HYPERLIPIDAEMIA
     Dosage: 5-15 MG
     Route: 048
     Dates: start: 20111103
  7. ZETIA [Concomitant]
  8. LISINOPRIL [Concomitant]
  9. ASPIRIN [Concomitant]
  10. DEXILANT [Concomitant]
     Indication: GASTROOESOPHAGEAL REFLUX DISEASE
  11. VITAMIN B12 [Concomitant]
  12. VITAMIN D3 [Concomitant]
  13. EZETIMIBE [Concomitant]
     Indication: HYPERLIPIDAEMIA

REACTIONS (4)
  - Myalgia [Not Recovered/Not Resolved]
  - Paraesthesia [Unknown]
  - Muscular weakness [Unknown]
  - Musculoskeletal stiffness [Unknown]
